FAERS Safety Report 22285537 (Version 2)
Quarter: 2023Q2

REPORT INFORMATION
  Report Type: Spontaneous
  Country: US (occurrence: US)
  Receive Date: 20230504
  Receipt Date: 20230521
  Transmission Date: 20230721
  Serious: No
  Sender: FDA-Public Use
  Company Number: US-BAUSCHBL-2023BNL003569

PATIENT
  Age: 72 Year
  Sex: Female

DRUGS (2)
  1. LUMIFY [Suspect]
     Active Substance: BRIMONIDINE TARTRATE
     Indication: Ocular hyperaemia
     Dosage: STARTED ABOUT 4 YEARS, ONCE A DAY IN THE MORNING
     Route: 047
     Dates: end: 202304
  2. LUMIFY [Suspect]
     Active Substance: BRIMONIDINE TARTRATE

REACTIONS (8)
  - Diplopia [Recovered/Resolved]
  - Vitreous floaters [Recovered/Resolved]
  - Visual field defect [Recovered/Resolved]
  - Photopsia [Recovered/Resolved]
  - Instillation site pruritus [Recovered/Resolved]
  - Photophobia [Recovered/Resolved]
  - Headache [Recovered/Resolved]
  - Vision blurred [Recovered/Resolved]
